FAERS Safety Report 19108040 (Version 1)
Quarter: 2021Q2

REPORT INFORMATION
  Report Type: Spontaneous
  Country: US (occurrence: US)
  Receive Date: 20210408
  Receipt Date: 20210408
  Transmission Date: 20210717
  Serious: Yes (Other)
  Sender: FDA-Public Use
  Company Number: None

PATIENT
  Age: 84 Year

DRUGS (1)
  1. XIIDRA [Suspect]
     Active Substance: LIFITEGRAST
     Dates: start: 20210325, end: 20210326

REACTIONS (3)
  - Eye pain [None]
  - Visual impairment [None]
  - Eye swelling [None]

NARRATIVE: CASE EVENT DATE: 20210326
